FAERS Safety Report 7229571-7 (Version None)
Quarter: 2011Q1

REPORT INFORMATION
  Report Type: 
  Country: None (occurrence: None)
  Receive Date: 20110117
  Receipt Date: 20101004
  Transmission Date: 20110831
  Serious: No
  Sender: FDA-Public Use
  Company Number: US-TYCO HEALTHCARE/MALLINCKRODT-T201001881

PATIENT
  Sex: Male

DRUGS (3)
  1. PREDNISONE [Concomitant]
     Dosage: 32 MG, SINGLE
     Dates: start: 20100824, end: 20100824
  2. OPTIRAY 350 [Suspect]
     Indication: ANGIOGRAM
     Dosage: 100 ML, SINGLE
     Route: 042
     Dates: start: 20100824, end: 20100824
  3. PREDNISONE [Concomitant]
     Indication: PREMEDICATION
     Dosage: 32 MG, SINGLE
     Dates: start: 20100823, end: 20100823

REACTIONS (4)
  - RHINORRHOEA [None]
  - NASAL CONGESTION [None]
  - SNEEZING [None]
  - THROAT IRRITATION [None]
